FAERS Safety Report 8055617 (Version 2)
Quarter: 2013Q2

REPORT INFORMATION
  Report Type: Spontaneous
  Country: US (occurrence: US)
  Receive Date: 20110726
  Receipt Date: 20130404
  Transmission Date: 20140414
  Serious: Yes (Other)
  Sender: FDA-Public Use
  Company Number: US-AMGEN-USASP2011036142

PATIENT
  Age: 60 Year
  Sex: Female

DRUGS (6)
  1. ENBREL [Suspect]
     Indication: PSORIASIS
     Dosage: 50 MG, QWK
     Route: 058
     Dates: start: 201102
  2. LEVOTHYROXINE [Concomitant]
     Dosage: 137 MG, QD
     Route: 048
     Dates: start: 2007
  3. EEMT [Concomitant]
     Dosage: UNK
     Route: 048
  4. ATENOLOL [Concomitant]
     Dosage: 25 MG, UNK
     Route: 048
  5. MEDROXYPROGESTERON [Concomitant]
     Dosage: 2.5 MG, UNK
     Route: 048
  6. VITAMIN B 12 [Concomitant]
     Dosage: UNK

REACTIONS (1)
  - Hepatic steatosis [Recovered/Resolved]
